FAERS Safety Report 7853031-3 (Version None)
Quarter: 2011Q4

REPORT INFORMATION
  Report Type: 
  Country: None (occurrence: None)
  Receive Date: 20111026
  Receipt Date: 20110808
  Transmission Date: 20120403
  Serious: No
  Sender: FDA-Public Use
  Company Number: US-MUTUAL PHARMACEUTICAL COMPANY, INC.-DXCY20110013

PATIENT
  Age: 48 Year
  Sex: Female

DRUGS (2)
  1. DIFFERIN [Suspect]
     Indication: ACNE CYSTIC
     Route: 061
     Dates: start: 20110714, end: 20110714
  2. DOXYCYCLINE [Suspect]
     Indication: ACNE CYSTIC
     Route: 065
     Dates: start: 20110707

REACTIONS (5)
  - BURNING SENSATION [None]
  - PRURITUS [None]
  - RASH [None]
  - ERYTHEMA [None]
  - EYE SWELLING [None]
